FAERS Safety Report 25623072 (Version 1)
Quarter: 2025Q3

REPORT INFORMATION
  Report Type: Spontaneous
  Country: CN (occurrence: CN)
  Receive Date: 20250730
  Receipt Date: 20250730
  Transmission Date: 20251021
  Serious: Yes (Other)
  Sender: BRACCO
  Company Number: CN-BRACCO-2025CN05131

PATIENT
  Age: 66 Year
  Sex: Male

DRUGS (1)
  1. IOMERON [Suspect]
     Active Substance: IOMEPROL
     Indication: Angiogram cerebral
     Route: 042
     Dates: start: 20250515, end: 20250515

REACTIONS (5)
  - Blood pressure increased [Recovering/Resolving]
  - Dizziness [Recovering/Resolving]
  - Head discomfort [Recovering/Resolving]
  - Gait disturbance [Recovering/Resolving]
  - Memory impairment [Recovering/Resolving]

NARRATIVE: CASE EVENT DATE: 20250515
